FAERS Safety Report 8416595-7 (Version None)
Quarter: 2012Q2

REPORT INFORMATION
  Report Type: 
  Country: None (occurrence: None)
  Receive Date: 20120606
  Receipt Date: 20120524
  Transmission Date: 20120825
  Serious: Yes (Other)
  Sender: FDA-Public Use
  Company Number: US-ROCHE-1073537

PATIENT

DRUGS (3)
  1. LENALIDOMIDE [Suspect]
     Indication: B-CELL LYMPHOMA RECURRENT
     Dosage: CYCLE 1
  2. MABTHERA [Suspect]
     Indication: B-CELL LYMPHOMA RECURRENT
     Dosage: 375 MG/ME2 WEEKLY X 4
  3. LENALIDOMIDE [Suspect]
     Dosage: CYCLES 2-12, ADMINISTERED DAYS 1-21 Q 28 DAYS X 12 CYCLES

REACTIONS (3)
  - FATIGUE [None]
  - NEUTROPENIA [None]
  - THROMBOSIS [None]
